FAERS Safety Report 4502034-5 (Version None)
Quarter: 2004Q4

REPORT INFORMATION
  Report Type: 
  Country: None (occurrence: None)
  Receive Date: 20041115
  Receipt Date: 20041115
  Transmission Date: 20050328
  Serious: Yes (Disabling)
  Sender: FDA-Public Use
  Company Number: None

PATIENT
  Sex: Male
  Weight: 99.7913 kg

DRUGS (5)
  1. LIPITOR [Suspect]
     Indication: BLOOD CHOLESTEROL INCREASED
     Dosage: 20MG DAILY ORAL
     Route: 048
     Dates: start: 20041020, end: 20041107
  2. METFORMIN HCL [Concomitant]
  3. MAGNESIUM [Concomitant]
  4. COQ10 [Concomitant]
  5. GARLINASE [Concomitant]

REACTIONS (5)
  - DIPLOPIA [None]
  - FATIGUE [None]
  - MYALGIA [None]
  - TRANSIENT ISCHAEMIC ATTACK [None]
  - VITH NERVE PARALYSIS [None]
